FAERS Safety Report 25069286 (Version 1)
Quarter: 2025Q1

REPORT INFORMATION
  Report Type: Spontaneous
  Country: ES (occurrence: ES)
  Receive Date: 20250312
  Receipt Date: 20250312
  Transmission Date: 20250408
  Serious: Yes (Other)
  Sender: MYLAN
  Company Number: ES-MYLANLABS-2025M1020041

PATIENT
  Age: 29 Year
  Sex: Female

DRUGS (24)
  1. LEVETIRACETAM [Suspect]
     Active Substance: LEVETIRACETAM
     Indication: Epilepsy
     Dosage: 2500 MILLIGRAM, QD
  2. LEVETIRACETAM [Suspect]
     Active Substance: LEVETIRACETAM
     Dosage: 2500 MILLIGRAM, QD
     Route: 065
  3. LEVETIRACETAM [Suspect]
     Active Substance: LEVETIRACETAM
     Dosage: 2500 MILLIGRAM, QD
     Route: 065
  4. LEVETIRACETAM [Suspect]
     Active Substance: LEVETIRACETAM
     Dosage: 2500 MILLIGRAM, QD
  5. LAMOTRIGINE [Suspect]
     Active Substance: LAMOTRIGINE
     Indication: Epilepsy
     Dosage: 500 MILLIGRAM, QD
  6. LAMOTRIGINE [Suspect]
     Active Substance: LAMOTRIGINE
     Dosage: 500 MILLIGRAM, QD
     Route: 065
  7. LAMOTRIGINE [Suspect]
     Active Substance: LAMOTRIGINE
     Dosage: 500 MILLIGRAM, QD
     Route: 065
  8. LAMOTRIGINE [Suspect]
     Active Substance: LAMOTRIGINE
     Dosage: 500 MILLIGRAM, QD
  9. CLOBAZAM [Suspect]
     Active Substance: CLOBAZAM
     Indication: Epilepsy
     Dosage: 10 MILLIGRAM, QD
  10. CLOBAZAM [Suspect]
     Active Substance: CLOBAZAM
     Dosage: 10 MILLIGRAM, QD
     Route: 065
  11. CLOBAZAM [Suspect]
     Active Substance: CLOBAZAM
     Dosage: 10 MILLIGRAM, QD
     Route: 065
  12. CLOBAZAM [Suspect]
     Active Substance: CLOBAZAM
     Dosage: 10 MILLIGRAM, QD
  13. LEVOTHYROXINE [Suspect]
     Active Substance: LEVOTHYROXINE
     Indication: Hypothyroidism
     Dosage: 25 MICROGRAM, QD
  14. LEVOTHYROXINE [Suspect]
     Active Substance: LEVOTHYROXINE
     Dosage: 25 MICROGRAM, QD
     Route: 065
  15. LEVOTHYROXINE [Suspect]
     Active Substance: LEVOTHYROXINE
     Dosage: 25 MICROGRAM, QD
     Route: 065
  16. LEVOTHYROXINE [Suspect]
     Active Substance: LEVOTHYROXINE
     Dosage: 25 MICROGRAM, QD
  17. FOLIC ACID [Suspect]
     Active Substance: FOLIC ACID
     Indication: Product used for unknown indication
     Dosage: 400 MICROGRAM, QD
  18. FOLIC ACID [Suspect]
     Active Substance: FOLIC ACID
     Dosage: 400 MICROGRAM, QD
  19. FOLIC ACID [Suspect]
     Active Substance: FOLIC ACID
     Dosage: 400 MICROGRAM, QD
     Route: 065
  20. FOLIC ACID [Suspect]
     Active Substance: FOLIC ACID
     Dosage: 400 MICROGRAM, QD
     Route: 065
  21. FOLIC ACID [Suspect]
     Active Substance: FOLIC ACID
  22. FOLIC ACID [Suspect]
     Active Substance: FOLIC ACID
  23. FOLIC ACID [Suspect]
     Active Substance: FOLIC ACID
     Route: 065
  24. FOLIC ACID [Suspect]
     Active Substance: FOLIC ACID
     Route: 065

REACTIONS (2)
  - Drug ineffective [Unknown]
  - Maternal exposure during pregnancy [Recovered/Resolved]
